FAERS Safety Report 25918955 (Version 1)
Quarter: 2025Q4

REPORT INFORMATION
  Report Type: Spontaneous
  Country: US (occurrence: None)
  Receive Date: 20251010
  Receipt Date: 20251010
  Transmission Date: 20260117
  Serious: Yes (Death)
  Sender: FDA-CTU
  Company Number: None

PATIENT
  Age: 82 Year
  Sex: Female

DRUGS (26)
  1. AMBRISENTAN [Suspect]
     Active Substance: AMBRISENTAN
     Indication: Pulmonary hypertension
     Dosage: FREQUENCY : DAILY;?
     Route: 048
     Dates: start: 20250604, end: 20250724
  2. SELEXIPAG [Suspect]
     Active Substance: SELEXIPAG
  3. SILDENAFIL [Suspect]
     Active Substance: SILDENAFIL
  4. SOTATERCEPT [Concomitant]
     Active Substance: SOTATERCEPT
  5. DIGOXIN [Concomitant]
     Active Substance: DIGOXIN
  6. ATORVASTATIN [Concomitant]
     Active Substance: ATORVASTATIN
  7. STIOLTO RESPIMAT [Concomitant]
     Active Substance: OLODATEROL HYDROCHLORIDE\TIOTROPIUM BROMIDE MONOHYDRATE
  8. morphine concentrate [Concomitant]
  9. CINACALCET [Concomitant]
     Active Substance: CINACALCET
  10. APIXABAN [Concomitant]
     Active Substance: APIXABAN
  11. alvesco HFAA [Concomitant]
  12. MIDODRINE [Concomitant]
     Active Substance: MIDODRINE
  13. LEVOTHYROXINE [Concomitant]
     Active Substance: LEVOTHYROXINE
  14. TORSEMIDE [Concomitant]
     Active Substance: TORSEMIDE
  15. METOPROLOL [Concomitant]
     Active Substance: METOPROLOL
  16. SPIRONOLACTONE [Concomitant]
     Active Substance: SPIRONOLACTONE
  17. VITAMIN B COMPLEX [Concomitant]
     Active Substance: CYANOCOBALAMIN\DEXPANTHENOL\NIACINAMIDE\PYRIDOXINE HYDROCHLORIDE\RIBOFLAVIN 5^-PHOSPHATE SODIUM\THIA
  18. Fit C-FA [Concomitant]
  19. PREDNISONE [Concomitant]
     Active Substance: PREDNISONE
  20. PHENAZOPYRIDINE [Concomitant]
     Active Substance: PHENAZOPYRIDINE
  21. AMIODARONE [Concomitant]
     Active Substance: AMIODARONE
  22. ACETYLCYSTEINE [Concomitant]
     Active Substance: ACETYLCYSTEINE
  23. LEVALBUTEROL [Concomitant]
     Active Substance: LEVALBUTEROL
  24. nystatin top powder [Concomitant]
  25. CRANBERRY [Concomitant]
     Active Substance: CRANBERRY
  26. COENZYME Q10 [Concomitant]
     Active Substance: DIETARY SUPPLEMENT\UBIDECARENONE

REACTIONS (2)
  - Right ventricular failure [None]
  - Respiratory failure [None]

NARRATIVE: CASE EVENT DATE: 20250711
